FAERS Safety Report 9456218 (Version 1)
Quarter: 2013Q3

REPORT INFORMATION
  Report Type: Spontaneous
  Country: JP (occurrence: None)
  Receive Date: 20130808
  Receipt Date: 20130808
  Transmission Date: 20140515
  Serious: Yes (Hospitalization)
  Sender: FDA-Public Use
  Company Number: TCI2013A04649

PATIENT
  Age: 75 Year
  Sex: Male

DRUGS (5)
  1. NESINA TABLETS 25 MG (ALOGLIPTIN BENZOATE) [Suspect]
     Indication: DIABETES MELLITUS
     Route: 048
  2. ACTOS (PIOGLITAZONE HYDROCHLORIDE) [Suspect]
     Indication: DIABETES MELLITUS
     Route: 048
  3. FIBRATES [Suspect]
     Indication: HYPERLIPIDAEMIA
     Route: 048
  4. AMARYL [Suspect]
     Indication: DIABETES MELLITUS
     Route: 048
  5. ANGIOTENSIN II ANTAGONIST+CALCIUM CHANNEL BLO [Suspect]

REACTIONS (22)
  - Osmotic demyelination syndrome [None]
  - Depressed level of consciousness [None]
  - Hypoglycaemia [None]
  - Blood pressure increased [None]
  - Heart rate increased [None]
  - Oxygen saturation decreased [None]
  - Muscle rigidity [None]
  - Red blood cell count decreased [None]
  - Haemoglobin decreased [None]
  - Blood lactate dehydrogenase increased [None]
  - Blood creatine phosphokinase increased [None]
  - Blood creatinine increased [None]
  - Blood urea increased [None]
  - Blood sodium decreased [None]
  - Blood potassium increased [None]
  - Blood glucose increased [None]
  - Glycosylated haemoglobin increased [None]
  - Protein urine present [None]
  - Blood pH decreased [None]
  - PCO2 increased [None]
  - Base excess decreased [None]
  - Blood lactic acid increased [None]
